FAERS Safety Report 6616495-9 (Version None)
Quarter: 2010Q1

REPORT INFORMATION
  Report Type: 
  Country: None (occurrence: None)
  Receive Date: 20100305
  Receipt Date: 20100223
  Transmission Date: 20100710
  Serious: Yes (Hospitalization, Other)
  Sender: FDA-Public Use
  Company Number: BR-PFIZER INC-2009306447

PATIENT
  Age: 53 Year
  Sex: Female
  Weight: 64 kg

DRUGS (7)
  1. CHAMPIX [Suspect]
     Indication: SMOKING CESSATION THERAPY
     Dosage: 1 MG, 2X/DAY; EVERY 12 HOURS
     Route: 048
     Dates: start: 20091125, end: 20100101
  2. CHAMPIX [Suspect]
  3. DEPAKOTE [Concomitant]
     Dosage: 500 MG, UNK
  4. RISPERIDONE [Concomitant]
     Dosage: UNK
  5. VALIUM [Concomitant]
     Dosage: 10 MG, UNK
  6. AMOXICILLIN [Concomitant]
     Dosage: UNK MG, UNK
  7. TIMOLOL MALEATE [Concomitant]
     Dosage: UNK

REACTIONS (3)
  - DRUG INEFFECTIVE [None]
  - INTRACRANIAL ANEURYSM [None]
  - NAUSEA [None]
